FAERS Safety Report 21927150 (Version 1)
Quarter: 2023Q1

REPORT INFORMATION
  Report Type: Spontaneous
  Country: US (occurrence: US)
  Receive Date: 20230130
  Receipt Date: 20230130
  Transmission Date: 20230418
  Serious: Yes (Other)
  Sender: FDA-Public Use
  Company Number: US-PFIZER INC-202300036670

PATIENT
  Age: 15 Year
  Sex: Female
  Weight: 54.43 kg

DRUGS (1)
  1. CELONTIN [Suspect]
     Active Substance: METHSUXIMIDE
     Indication: Petit mal epilepsy
     Dosage: UNK, 2X/DAY (UP TO THREE PILLS AT NIGHT AND TWO IN THE MORNING)

REACTIONS (1)
  - Generalised tonic-clonic seizure [Not Recovered/Not Resolved]
